FAERS Safety Report 10094924 (Version 2)
Quarter: 2014Q2

REPORT INFORMATION
  Report Type: Report from Study
  Country: KR (occurrence: KR)
  Receive Date: 20140422
  Receipt Date: 20140422
  Transmission Date: 20141212
  Serious: Yes (Other)
  Sender: FDA-Public Use
  Company Number: KR-OTSUKA-JP-2013-10122

PATIENT
  Age: 66 Year
  Sex: Male

DRUGS (1)
  1. OPC-13013 [Suspect]
     Indication: CEREBRAL ARTERY STENOSIS
     Dosage: 200 MG MILLIGRAM(S), UNK
     Route: 048

REACTIONS (1)
  - Vertebral artery occlusion [Recovered/Resolved]
